FAERS Safety Report 4714039-X (Version None)
Quarter: 2005Q3

REPORT INFORMATION
  Report Type: 
  Country: None (occurrence: None)
  Receive Date: 20050714
  Receipt Date: 20050712
  Transmission Date: 20060218
  Serious: Yes (Death)
  Sender: FDA-Public Use
  Company Number: 2005UW10318

PATIENT
  Age: 40 Year
  Sex: Male

DRUGS (3)
  1. SEROQUEL [Suspect]
     Route: 048
  2. BENZODIAZEPINES [Suspect]
  3. OPIATES [Suspect]

REACTIONS (1)
  - SUDDEN DEATH [None]
